FAERS Safety Report 21019237 (Version 2)
Quarter: 2022Q3

REPORT INFORMATION
  Report Type: Spontaneous
  Country: US (occurrence: US)
  Receive Date: 20220628
  Receipt Date: 20220930
  Transmission Date: 20221027
  Serious: No
  Sender: FDA-Public Use
  Company Number: US-SA-SAC20220620001163

PATIENT
  Age: 11 Year
  Sex: Female

DRUGS (1)
  1. DUPIXENT [Suspect]
     Active Substance: DUPILUMAB
     Indication: Dermatitis atopic
     Dosage: 200 MG, QOW
     Route: 058
     Dates: start: 2021

REACTIONS (12)
  - Sensitive skin [Not Recovered/Not Resolved]
  - Dry skin [Not Recovered/Not Resolved]
  - Pharyngitis streptococcal [Unknown]
  - Eyelid margin crusting [Unknown]
  - Erythema [Not Recovered/Not Resolved]
  - Pruritus [Not Recovered/Not Resolved]
  - Skin exfoliation [Not Recovered/Not Resolved]
  - Conjunctivitis [Unknown]
  - Eye irritation [Not Recovered/Not Resolved]
  - Eye pruritus [Unknown]
  - Eye inflammation [Not Recovered/Not Resolved]
  - Eye swelling [Unknown]

NARRATIVE: CASE EVENT DATE: 20220101
